FAERS Safety Report 6941035-4 (Version None)
Quarter: 2010Q3

REPORT INFORMATION
  Report Type: 
  Country: None (occurrence: None)
  Receive Date: 20100825
  Receipt Date: 20100817
  Transmission Date: 20110219
  Serious: Yes (Hospitalization)
  Sender: FDA-Public Use
  Company Number: B0671326A

PATIENT
  Sex: Female
  Weight: 57.7 kg

DRUGS (3)
  1. LAPATINIB [Suspect]
     Indication: BREAST CANCER METASTATIC
     Dosage: 1000MG PER DAY
     Route: 048
     Dates: start: 20100505
  2. DOCETAXEL [Suspect]
     Indication: BREAST CANCER METASTATIC
     Dosage: 109MG EVERY 3 WEEKS
     Route: 042
     Dates: start: 20100505
  3. PANTOPRAZOLE SODIUM [Concomitant]
     Indication: PROPHYLAXIS
     Dates: start: 20090101

REACTIONS (2)
  - DIARRHOEA [None]
  - HYPOKALAEMIA [None]
